FAERS Safety Report 5847862-9 (Version None)
Quarter: 2008Q3

REPORT INFORMATION
  Report Type: 
  Country: None (occurrence: None)
  Receive Date: 20080818
  Receipt Date: 20080807
  Transmission Date: 20090109
  Serious: Yes (Death)
  Sender: FDA-Public Use
  Company Number: JP-BAYER-200811687BYL

PATIENT
  Age: 78 Year
  Sex: Male
  Weight: 55 kg

DRUGS (10)
  1. NEXAVAR [Suspect]
     Indication: RENAL CELL CARCINOMA STAGE IV
     Dosage: TOTAL DAILY DOSE: 800 MG  UNIT DOSE: 200 MG
     Route: 048
     Dates: start: 20080418
  2. MAGMITT [Concomitant]
     Dosage: TOTAL DAILY DOSE: 1320 MG  UNIT DOSE: 330 MG
     Route: 048
  3. LOXONIN [Concomitant]
     Dosage: TOTAL DAILY DOSE: 180 MG  UNIT DOSE: 60 MG
     Route: 048
     Dates: start: 20080208
  4. MUCODYNE [Concomitant]
     Dosage: TOTAL DAILY DOSE: 250 MG  UNIT DOSE: 250 MG
     Route: 048
  5. PREDNISOLONE [Concomitant]
     Dosage: TOTAL DAILY DOSE: 10 MG  UNIT DOSE: 5 MG
     Route: 048
  6. OMEPRAZOLE [Concomitant]
     Dosage: TOTAL DAILY DOSE: 20 MG  UNIT DOSE: 20 MG
     Route: 048
  7. LENDORMIN [Concomitant]
     Dosage: TOTAL DAILY DOSE: 0.25 MG  UNIT DOSE: 0.25 MG
     Route: 048
  8. NU-LOTAN [Concomitant]
     Dosage: TOTAL DAILY DOSE: 25 MG  UNIT DOSE: 25 MG
     Route: 048
  9. THEO-DUR [Concomitant]
     Dosage: TOTAL DAILY DOSE: 200 MG  UNIT DOSE: 100 MG
     Route: 048
  10. LASIX [Concomitant]
     Dosage: TOTAL DAILY DOSE: 20 MG  UNIT DOSE: 20 MG
     Route: 048

REACTIONS (2)
  - PNEUMONIA [None]
  - RASH [None]
